FAERS Safety Report 5934347-4 (Version None)
Quarter: 2008Q4

REPORT INFORMATION
  Report Type: 
  Country: None (occurrence: None)
  Receive Date: 20081029
  Receipt Date: 20081021
  Transmission Date: 20090506
  Serious: Yes (Other)
  Sender: FDA-Public Use
  Company Number: PHEH2008US09470

PATIENT
  Sex: Female

DRUGS (2)
  1. FEMARA [Suspect]
  2. ARIMIDEX [Concomitant]
     Dosage: UNK
     Dates: start: 20081020

REACTIONS (4)
  - ARTHRITIS [None]
  - EYE DISORDER [None]
  - GAIT DISTURBANCE [None]
  - OEDEMA PERIPHERAL [None]
